FAERS Safety Report 22008701 (Version 2)
Quarter: 2023Q1

REPORT INFORMATION
  Report Type: Spontaneous
  Country: JP (occurrence: JP)
  Receive Date: 20230219
  Receipt Date: 20230329
  Transmission Date: 20230417
  Serious: Yes (Other)
  Sender: FDA-Public Use
  Company Number: JP-002147023-NVSJ2022JP276481

PATIENT
  Age: 75 Year
  Sex: Male
  Weight: 66 kg

DRUGS (15)
  1. BEOVU [Suspect]
     Active Substance: BROLUCIZUMAB-DBLL
     Indication: Neovascular age-related macular degeneration
     Dosage: 6 MG
     Route: 031
     Dates: start: 20220121, end: 20220121
  2. BEOVU [Suspect]
     Active Substance: BROLUCIZUMAB-DBLL
     Dosage: 6 MG
     Route: 031
     Dates: start: 20220218, end: 20220218
  3. BEOVU [Suspect]
     Active Substance: BROLUCIZUMAB-DBLL
     Dosage: 6 MG
     Route: 031
     Dates: start: 20220318, end: 20220318
  4. BEOVU [Suspect]
     Active Substance: BROLUCIZUMAB-DBLL
     Dosage: 6 MG
     Route: 031
     Dates: start: 20220513, end: 20220513
  5. BEOVU [Suspect]
     Active Substance: BROLUCIZUMAB-DBLL
     Dosage: 6 MG
     Route: 031
     Dates: start: 20220805, end: 20220805
  6. BEOVU [Suspect]
     Active Substance: BROLUCIZUMAB-DBLL
     Dosage: 6 MG
     Route: 031
     Dates: start: 20221007, end: 20221007
  7. LEVOFLOXACIN HEMIHYDRATE [Concomitant]
     Active Substance: LEVOFLOXACIN
     Indication: Perioperative analgesia
     Dosage: 1 DRP, QID
     Dates: start: 20221004, end: 20221014
  8. METHYLCOBALAMIN [Concomitant]
     Active Substance: METHYLCOBALAMIN
     Indication: Cerebral infarction
     Dosage: 500 UG, TID
     Route: 048
  9. LIMAPROST [Concomitant]
     Active Substance: LIMAPROST
     Indication: Cerebral infarction
     Dosage: 5 UG, TID
     Route: 048
  10. ASPIRIN [Concomitant]
     Active Substance: ASPIRIN
     Indication: Cerebral infarction
     Dosage: 100 MG, QD
     Route: 048
  11. ROSUVASTATIN CALCIUM [Concomitant]
     Active Substance: ROSUVASTATIN CALCIUM
     Indication: Hyperlipidaemia
     Dosage: 2.5 MG, TID
     Route: 048
  12. ESOMEPRAZOLE MAGNESIUM [Concomitant]
     Active Substance: ESOMEPRAZOLE MAGNESIUM
     Indication: Product used for unknown indication
     Dosage: 20 MG, QD
     Route: 048
  13. LYRICA [Concomitant]
     Active Substance: PREGABALIN
     Indication: Cerebral infarction
     Dosage: 75 MG, BID
     Route: 048
  14. AMLODIPINE [Concomitant]
     Active Substance: AMLODIPINE BESYLATE
     Indication: Hypertension
     Dosage: 2.5 MG, QD
     Route: 048
  15. TALION [Concomitant]
     Indication: Rhinitis allergic
     Dosage: 10 MG, BID
     Route: 048

REACTIONS (11)
  - Scleritis [Recovering/Resolving]
  - Keratic precipitates [Recovered/Resolved]
  - Macular oedema [Recovered/Resolved]
  - Vitreous floaters [Recovering/Resolving]
  - Episcleral hyperaemia [Recovered/Resolved]
  - Anterior chamber cell [Recovered/Resolved]
  - Vitreous opacities [Recovering/Resolving]
  - Visual field defect [Recovered/Resolved]
  - Iritis [Recovered/Resolved]
  - Conjunctival hyperaemia [Recovered/Resolved]
  - Papilloedema [Recovered/Resolved]

NARRATIVE: CASE EVENT DATE: 20221101
